FAERS Safety Report 7527909-4 (Version None)
Quarter: 2011Q2

REPORT INFORMATION
  Report Type: 
  Country: None (occurrence: None)
  Receive Date: 20110607
  Receipt Date: 20030517
  Transmission Date: 20111010
  Serious: Yes (Death)
  Sender: FDA-Public Use
  Company Number: PHBS2003NZ14649

PATIENT
  Sex: Male

DRUGS (4)
  1. TRIFLUOPERAZINE HCL [Concomitant]
     Dosage: 15 MG, QID
  2. CLOZARIL [Suspect]
     Indication: SCHIZOPHRENIA
     Route: 048
     Dates: start: 19960709, end: 20030517
  3. PIPOTIAZINE PALMITATE [Concomitant]
     Dosage: 100 MG 2/52
  4. BENZTROPINE MESYLATE [Concomitant]
     Dosage: 2 MG MANE

REACTIONS (1)
  - NEOPLASM MALIGNANT [None]
